FAERS Safety Report 10423289 (Version 1)
Quarter: 2014Q3

REPORT INFORMATION
  Report Type: Spontaneous
  Country: NL (occurrence: NL)
  Receive Date: 20140902
  Receipt Date: 20140902
  Transmission Date: 20150326
  Serious: Yes (Other)
  Sender: FDA-Public Use
  Company Number: NL-JNJFOC-20140818401

PATIENT
  Sex: Female

DRUGS (1)
  1. DESOGESTREL/ETHINYL ESTRADIOL [Suspect]
     Active Substance: DESOGESTREL\ETHINYL ESTRADIOL
     Indication: CONTRACEPTION
     Route: 048

REACTIONS (4)
  - Venous thrombosis [Unknown]
  - Thyroxine free increased [Unknown]
  - Thyroxin binding globulin increased [Unknown]
  - Blood thyroid stimulating hormone increased [Unknown]
